FAERS Safety Report 8365479-1 (Version None)
Quarter: 2012Q2

REPORT INFORMATION
  Report Type: 
  Country: None (occurrence: None)
  Receive Date: 20120516
  Receipt Date: 20120508
  Transmission Date: 20120825
  Serious: Yes (Hospitalization, Other)
  Sender: FDA-Public Use
  Company Number: PHHY2012US039184

PATIENT
  Age: 79 Year
  Sex: Male

DRUGS (18)
  1. SIMVASTATIN [Interacting]
     Dosage: 40 MG, DAILY
  2. LEVOTHYROXINE SODIUM [Concomitant]
     Dosage: 88 UG, DAILY
  3. METOPROLOL TARTRATE [Concomitant]
     Dosage: 200 MG, DAILY
  4. FUROSEMIDE [Concomitant]
     Dosage: 40 MG, DAILY
  5. SODIUM POLYSTYRENE SULFONATE [Concomitant]
     Dosage: 30 G, DAILY
  6. GEMFIBROZIL [Interacting]
     Dosage: 60 MG, BID
  7. AMLODIPINE BESYLATE [Interacting]
     Dosage: 10 MG, DAILY
  8. SIMVASTATIN [Suspect]
     Dosage: 20 MG, DAILY
  9. FERROUS SULFATE TAB [Concomitant]
     Dosage: 325 MG, DAILY
  10. ASPIRIN [Concomitant]
     Dosage: 81 MG, DAILY
  11. ERGOCALCIFEROL [Concomitant]
     Dosage: 50000 U, TWICE MONTHLY
  12. LACTULOSE [Concomitant]
     Indication: CONSTIPATION
     Dosage: 20 G, AS NEEDED
  13. DOXAZOSIN MESYLATE [Interacting]
     Dosage: 8 MG, DAILY
  14. HYDRALAZINE HCL [Concomitant]
     Dosage: 100 MG, IN DIVIDED DOSES
  15. TRAVOPROST [Concomitant]
  16. FINASTERIDE [Interacting]
     Dosage: 5 MG, DAILY
  17. LISINOPRIL [Concomitant]
     Dosage: 20 MG, DAILY
  18. INSULIN GLARGINE [Concomitant]
     Dosage: 70 U, DAILY

REACTIONS (21)
  - EROSIVE DUODENITIS [None]
  - ILEUS [None]
  - HAEMOGLOBIN DECREASED [None]
  - MITRAL VALVE INCOMPETENCE [None]
  - ALANINE AMINOTRANSFERASE INCREASED [None]
  - IRRITABILITY [None]
  - ASPARTATE AMINOTRANSFERASE INCREASED [None]
  - PARAESTHESIA [None]
  - TRICUSPID VALVE INCOMPETENCE [None]
  - ABDOMINAL DISTENSION [None]
  - IRON DEFICIENCY ANAEMIA [None]
  - PAIN [None]
  - GAIT DISTURBANCE [None]
  - MUSCULAR WEAKNESS [None]
  - BLOOD CREATININE INCREASED [None]
  - ABDOMINAL PAIN [None]
  - DRUG INTERACTION [None]
  - MYOTONIA [None]
  - MYOPATHY TOXIC [None]
  - RHABDOMYOLYSIS [None]
  - RENAL FAILURE CHRONIC [None]
